FAERS Safety Report 4327002-8 (Version None)
Quarter: 2004Q1

REPORT INFORMATION
  Report Type: 
  Country: None (occurrence: None)
  Receive Date: 20040322
  Receipt Date: 20031204
  Transmission Date: 20041129
  Serious: No
  Sender: FDA-Public Use
  Company Number: US-JNJFOC-20031201841

PATIENT
  Age: 52 Year
  Sex: Female
  Weight: 87.9978 kg

DRUGS (3)
  1. ORTHO TRI-CYCLEN LO [Suspect]
     Indication: SKIN DISORDER
     Dosage: 1 DOSE(S), 1 IN 1 DAY, ORAL
     Route: 048
     Dates: start: 20030401
  2. MVI (MULTIVITAMINS) [Concomitant]
  3. CALCIUM [Concomitant]

REACTIONS (1)
  - ALOPECIA [None]
